FAERS Safety Report 22296894 (Version 2)
Quarter: 2023Q2

REPORT INFORMATION
  Report Type: Spontaneous
  Country: ES (occurrence: ES)
  Receive Date: 20230509
  Receipt Date: 20230518
  Transmission Date: 20230721
  Serious: Yes (Life-Threatening, Other)
  Sender: FDA-Public Use
  Company Number: None

PATIENT
  Age: 58 Year
  Sex: Female

DRUGS (1)
  1. CEFUROXIME AXETIL [Suspect]
     Active Substance: CEFUROXIME AXETIL
     Indication: Cellulitis
     Dosage: 500 MILLIGRAM
     Route: 065

REACTIONS (1)
  - Anaphylactic shock [Recovered/Resolved]
